FAERS Safety Report 6040270-X (Version None)
Quarter: 2009Q1

REPORT INFORMATION
  Report Type: 
  Country: None (occurrence: None)
  Receive Date: 20090116
  Receipt Date: 20080205
  Transmission Date: 20090719
  Serious: No
  Sender: FDA-Public Use
  Company Number: US-BRISTOL-MYERS SQUIBB COMPANY-14065296

PATIENT
  Age: 11 Year
  Sex: Male

DRUGS (1)
  1. ABILIFY [Suspect]
     Dosage: DOSE DECREASED TO 10MG
     Route: 048
     Dates: start: 20070101

REACTIONS (2)
  - DYSKINESIA [None]
  - VISION BLURRED [None]
